FAERS Safety Report 25451365 (Version 1)
Quarter: 2025Q2

REPORT INFORMATION
  Report Type: Spontaneous
  Country: US (occurrence: US)
  Receive Date: 20250618
  Receipt Date: 20250618
  Transmission Date: 20250717
  Serious: Yes (Hospitalization)
  Sender: OTSUKA
  Company Number: US-MMM-Otsuka-G7I8B9Q3

PATIENT
  Age: 35 Year
  Sex: Male
  Weight: 99.77 kg

DRUGS (4)
  1. ABILIFY [Suspect]
     Active Substance: ARIPIPRAZOLE
     Indication: Bipolar I disorder
     Dosage: 1 DF, QD
     Route: 048
     Dates: start: 20250227, end: 20250609
  2. LURASIDONE [Suspect]
     Active Substance: LURASIDONE
     Indication: Bipolar I disorder
     Dosage: 60 MG, QD
     Route: 048
     Dates: end: 20250227
  3. LURASIDONE [Suspect]
     Active Substance: LURASIDONE
     Route: 065
     Dates: start: 20250609
  4. DEPAKOTE [Concomitant]
     Active Substance: DIVALPROEX SODIUM
     Indication: Product used for unknown indication
     Dosage: 750 MG, DAILY (500 MG IN THE MORNING AND 250 MG IN THE AFTERNOON)
     Route: 065

REACTIONS (4)
  - Mania [Not Recovered/Not Resolved]
  - Impulse-control disorder [Unknown]
  - Imprisonment [Recovered/Resolved]
  - Imprisonment [Not Recovered/Not Resolved]

NARRATIVE: CASE EVENT DATE: 20250227
